FAERS Safety Report 14775849 (Version 2)
Quarter: 2018Q2

REPORT INFORMATION
  Report Type: Spontaneous
  Country: US (occurrence: US)
  Receive Date: 20180418
  Receipt Date: 20180517
  Transmission Date: 20180711
  Serious: Yes (Hospitalization, Other)
  Sender: FDA-Public Use
  Company Number: US-JNJFOC-20180323801

PATIENT
  Sex: Female
  Weight: 98.41 kg

DRUGS (3)
  1. OPSUMIT [Suspect]
     Active Substance: MACITENTAN
     Indication: PULMONARY ARTERIAL HYPERTENSION
     Route: 048
     Dates: start: 20160708
  2. TOPAMAX [Suspect]
     Active Substance: TOPIRAMATE
     Indication: PRODUCT USED FOR UNKNOWN INDICATION
     Route: 048
  3. LAMICTAL [Concomitant]
     Active Substance: LAMOTRIGINE
     Route: 065

REACTIONS (11)
  - Hypersomnia [Unknown]
  - Toxicity to various agents [Unknown]
  - Petit mal epilepsy [Unknown]
  - Nasal congestion [Unknown]
  - Fatigue [Unknown]
  - Pruritus [Unknown]
  - Vascular device user [Unknown]
  - Pneumonitis [Unknown]
  - Irritability [Unknown]
  - Amnesia [Unknown]
  - Weight increased [Unknown]
